FAERS Safety Report 9582278 (Version 1)
Quarter: 2013Q4

REPORT INFORMATION
  Report Type: Spontaneous
  Country: TW (occurrence: TW)
  Receive Date: 20131002
  Receipt Date: 20131002
  Transmission Date: 20140711
  Serious: Yes (Other)
  Sender: FDA-Public Use
  Company Number: TW-MYLANLABS-2013S1021348

PATIENT
  Age: 50 Year
  Sex: Female

DRUGS (6)
  1. VALPROIC ACID [Suspect]
     Indication: BIPOLAR I DISORDER
     Dosage: 1400MG/DAY
     Route: 065
  2. VALPROIC ACID [Suspect]
     Indication: BIPOLAR I DISORDER
     Dosage: 1000MG/DAY FOR 5Y; INCREASED TO 1400MG/DAY
     Route: 065
  3. LITHIUM [Suspect]
     Indication: BIPOLAR I DISORDER
     Dosage: 600MG/DAY
     Route: 065
  4. TRILEPTAL [Concomitant]
     Indication: BIPOLAR I DISORDER
     Route: 065
  5. RISPERIDONE [Concomitant]
     Indication: BIPOLAR I DISORDER
     Dosage: 2MG/DAY
     Route: 065
  6. CARBAMAZEPINE [Concomitant]
     Indication: BIPOLAR I DISORDER
     Dosage: 400MG/DAY
     Route: 065

REACTIONS (5)
  - Thrombocytopenia [Recovered/Resolved]
  - Pancytopenia [Recovered/Resolved]
  - Renal failure chronic [Unknown]
  - Toxicity to various agents [Unknown]
  - Accidental poisoning [Unknown]
